FAERS Safety Report 9654564 (Version 2)
Quarter: 2013Q4

REPORT INFORMATION
  Report Type: Spontaneous
  Country: IT (occurrence: None)
  Receive Date: 20131028
  Receipt Date: 20131112
  Transmission Date: 20140711
  Serious: Yes (Death, Other)
  Sender: FDA-Public Use
  Company Number: 2013IT002720

PATIENT
  Sex: 0

DRUGS (5)
  1. PONATINIB (AP24534) TABLET [Suspect]
     Indication: ACUTE LYMPHOCYTIC LEUKAEMIA
     Route: 048
     Dates: start: 20130502, end: 20130523
  2. ZYLORIC (ALLOPURINOL) [Concomitant]
  3. MODURETIC (AMILORIDE HYDROCHLORIDE, HYDROCHLOROTHIAZIDE) [Concomitant]
  4. AVALOX (MOCIFLOXACIN HYDROCHLORIDE) [Concomitant]
  5. BACTRIM [Concomitant]

REACTIONS (2)
  - Pericardial effusion [None]
  - Rash [None]
